FAERS Safety Report 23679894 (Version 1)
Quarter: 2024Q1

REPORT INFORMATION
  Report Type: Spontaneous
  Country: IT (occurrence: IT)
  Receive Date: 20240327
  Receipt Date: 20240327
  Transmission Date: 20240409
  Serious: Yes (Other)
  Sender: FDA-Public Use
  Company Number: None

PATIENT
  Age: 1 Year
  Sex: Female

DRUGS (3)
  1. PROQUAD [Suspect]
     Active Substance: MEASLES VIRUS STRAIN ENDERS^ ATTENUATED EDMONSTON LIVE ANTIGEN\MUMPS VIRUS STRAIN B LEVEL JERYL LYNN
     Indication: Immunisation
     Dosage: .5 MILLILITER
     Dates: start: 20191129
  2. STERILE DILUENT (WATER) [Suspect]
     Active Substance: WATER
     Dosage: UNK
     Dates: start: 20191129
  3. PREVNAR 13 [Concomitant]
     Active Substance: STREPTOCOCCUS PNEUMONIAE TYPE 1 CAPSULAR POLYSACCHARIDE DIPHTHERIA CRM197 PROTEIN CONJUGATE ANTIGEN\
     Indication: Immunisation
     Dosage: 1 VIAL OF 0.5 ML, SINGLE ADMINISTRATION. ALREADY ADMINISTERED (PREVENAR13) IN THE PAST ON 01/25/2019
     Route: 030
     Dates: start: 20191129

REACTIONS (1)
  - Febrile convulsion [Recovered/Resolved]

NARRATIVE: CASE EVENT DATE: 20191204
